FAERS Safety Report 8871286 (Version 1)
Quarter: 2012Q4

REPORT INFORMATION
  Report Type: 
  Country: US (occurrence: US)
  Receive Date: 20121026
  Receipt Date: 20121026
  Transmission Date: 20130627
  Serious: No
  Sender: FDA-Public Use
  Company Number: US-AMGEN-USASP2012048304

PATIENT
  Age: 57 Year
  Sex: Female
  Weight: 99.77 kg

DRUGS (11)
  1. ENBREL [Suspect]
     Indication: PRODUCT USED FOR UNKNOWN INDICATION
     Dosage: 50 mg, 2 times/wk
     Route: 058
  2. RESTASIS [Concomitant]
     Dosage: 0.05 %, UNK
  3. RELAFEN [Concomitant]
     Dosage: 750 mg, UNK
  4. LEUCOVORIN CA [Concomitant]
     Dosage: 25 mg, UNK
  5. VICODIN [Concomitant]
     Dosage: UNK mg, (5-500 mg)
  6. LIDOCAINE [Concomitant]
     Dosage: 5 %, UNK
  7. FLONASE [Concomitant]
     Dosage: 0.05 %, UNK
  8. NEXIUM                             /01479302/ [Concomitant]
     Dosage: 20 mg, UNK
  9. TYLENOL /00020001/ [Concomitant]
     Dosage: 500 mg, UNK
  10. METHOTREXATE [Concomitant]
     Dosage: 25 mg/ml, UNK
  11. EVOXAC [Concomitant]
     Dosage: 30 mg, UNK

REACTIONS (1)
  - Infected bites [Unknown]
